FAERS Safety Report 5218754-3 (Version None)
Quarter: 2007Q1

REPORT INFORMATION
  Report Type: 
  Country: None (occurrence: None)
  Receive Date: 20070123
  Receipt Date: 20070112
  Transmission Date: 20070707
  Serious: Yes (Hospitalization)
  Sender: FDA-Public Use
  Company Number: 2007AL000265

PATIENT
  Age: 64 Year
  Sex: Male

DRUGS (7)
  1. METFORMIN HYDROCHLORIDE [Suspect]
     Indication: DIABETES MELLITUS NON-INSULIN-DEPENDENT
     Dosage: 500 MG; BID;PO
     Route: 048
  2. LEVOTHYROXINE SODIUM [Concomitant]
  3. MECLIZINE [Concomitant]
  4. NIACIN [Concomitant]
  5. NORTRIPTYLINE HCL [Concomitant]
  6. SIMVASTATIN [Concomitant]
  7. PROMETHAZINE [Concomitant]

REACTIONS (6)
  - ARTERY DISSECTION [None]
  - BLOOD UREA INCREASED [None]
  - BODY TEMPERATURE DECREASED [None]
  - CEREBELLAR INFARCTION [None]
  - HEART RATE INCREASED [None]
  - LACTIC ACIDOSIS [None]
